FAERS Safety Report 8252074-8 (Version None)
Quarter: 2012Q2

REPORT INFORMATION
  Report Type: 
  Country: None (occurrence: None)
  Receive Date: 20120402
  Receipt Date: 20110308
  Transmission Date: 20120825
  Serious: No
  Sender: FDA-Public Use
  Company Number: US-ABBOTT-11P-163-0804269-00

PATIENT
  Sex: Male
  Weight: 72.727 kg

DRUGS (2)
  1. TESTOSTERONE [Suspect]
     Dosage: DAILY DOSE: 10 GRAM(S), VIA PACKETS
     Route: 062
  2. TESTOSTERONE [Suspect]
     Indication: BLOOD TESTOSTERONE DECREASED
     Dosage: DAILY DOSE: 5 GRAM(S), VIA PUMP
     Route: 062
     Dates: start: 20100401

REACTIONS (5)
  - DRUG ADMINISTERED AT INAPPROPRIATE SITE [None]
  - EJACULATION DISORDER [None]
  - DRUG INEFFECTIVE [None]
  - DYSURIA [None]
  - ERECTILE DYSFUNCTION [None]
